FAERS Safety Report 9325579 (Version 1)
Quarter: 2013Q2

REPORT INFORMATION
  Report Type: Spontaneous
  Country: US (occurrence: None)
  Receive Date: 20130531
  Receipt Date: 20130531
  Transmission Date: 20140414
  Serious: No
  Sender: FDA-Public Use
  Company Number: None

PATIENT
  Age: 44 Year
  Sex: Female
  Weight: 107.3 kg

DRUGS (1)
  1. LURASIDONE [Suspect]
     Indication: DEPRESSION
     Dosage: 20 MG EVERY DAY PO
     Route: 048
     Dates: start: 20130225, end: 20130227

REACTIONS (2)
  - Nausea [None]
  - Vomiting [None]
